FAERS Safety Report 5996342-9 (Version None)
Quarter: 2008Q4

REPORT INFORMATION
  Report Type: 
  Country: None (occurrence: None)
  Receive Date: 20081212
  Receipt Date: 20081009
  Transmission Date: 20090506
  Serious: No
  Sender: FDA-Public Use
  Company Number: US-ABBOTT-08P-163-0480964-00

PATIENT
  Sex: Female
  Weight: 120.31 kg

DRUGS (4)
  1. HUMIRA [Suspect]
     Indication: ARTHRITIS
     Dates: start: 20080929
  2. BUDESONIDE [Concomitant]
     Indication: SEASONAL ALLERGY
     Dosage: 2 SQUIRTS PER NOSTRIL
     Route: 045
  3. CIRRUS [Concomitant]
     Indication: SEASONAL ALLERGY
     Route: 048
  4. ALBUTEROL SULFATE [Concomitant]
     Indication: ASTHMA
     Route: 048

REACTIONS (7)
  - BRONCHIAL DISORDER [None]
  - COUGH [None]
  - OROPHARYNGEAL PAIN [None]
  - PYREXIA [None]
  - SEASONAL ALLERGY [None]
  - SINUS DISORDER [None]
  - SPUTUM DISCOLOURED [None]
